FAERS Safety Report 8255937-2 (Version None)
Quarter: 2012Q2

REPORT INFORMATION
  Report Type: 
  Country: None (occurrence: None)
  Receive Date: 20120403
  Receipt Date: 20120326
  Transmission Date: 20120825
  Serious: Yes (Hospitalization)
  Sender: FDA-Public Use
  Company Number: US-BAYER-2012-030025

PATIENT
  Age: 39 Year
  Sex: Female
  Weight: 98.6 kg

DRUGS (5)
  1. FERROUS SULFATE TAB [Concomitant]
     Route: 048
  2. TYLENOL [Concomitant]
  3. NORVASC [Concomitant]
     Route: 048
  4. YAZ [Suspect]
  5. UNKNOWN ALLERGY PILL [Concomitant]

REACTIONS (2)
  - ACUTE MYOCARDIAL INFARCTION [None]
  - PULMONARY EMBOLISM [None]
